FAERS Safety Report 23795554 (Version 1)
Quarter: 2024Q2

REPORT INFORMATION
  Report Type: Spontaneous
  Country: US (occurrence: US)
  Receive Date: 20240429
  Receipt Date: 20240429
  Transmission Date: 20240716
  Serious: No
  Sender: FDA-Public Use
  Company Number: US-PFIZER INC-202400095078

PATIENT
  Age: 70 Year
  Sex: Male

DRUGS (14)
  1. XELJANZ [Suspect]
     Active Substance: TOFACITINIB CITRATE
     Dosage: 5 MG
  2. TAMSULOSIN [Concomitant]
     Active Substance: TAMSULOSIN
  3. HYDROXYCHLOROQUINE [Concomitant]
     Active Substance: HYDROXYCHLOROQUINE
  4. ATORVASTATIN [Concomitant]
     Active Substance: ATORVASTATIN
  5. GABAPENTIN [Concomitant]
     Active Substance: GABAPENTIN
  6. AMLODIPINE [Concomitant]
     Active Substance: AMLODIPINE BESYLATE
  7. GLIPIZIDE [Concomitant]
     Active Substance: GLIPIZIDE
  8. IBUPROFEN [Concomitant]
     Active Substance: IBUPROFEN
  9. EZETIMIBE [Concomitant]
     Active Substance: EZETIMIBE
  10. CLOBETASOL [Concomitant]
     Active Substance: CLOBETASOL
  11. METFORMIN [Concomitant]
     Active Substance: METFORMIN HYDROCHLORIDE
  12. VENTOLIN [Concomitant]
     Active Substance: ALBUTEROL SULFATE
  13. ALBUTEROL [Concomitant]
     Active Substance: ALBUTEROL
  14. DEXTRAN [Concomitant]
     Active Substance: DEXTRAN

REACTIONS (1)
  - COVID-19 [Unknown]
